FAERS Safety Report 5309380-6 (Version None)
Quarter: 2007Q2

REPORT INFORMATION
  Report Type: 
  Country: None (occurrence: None)
  Receive Date: 20070425
  Receipt Date: 20070425
  Transmission Date: 20071010
  Serious: Yes (Other)
  Sender: FDA-Public Use
  Company Number: None

PATIENT
  Age: 25 Year
  Sex: Male
  Weight: 92.0802 kg

DRUGS (3)
  1. CITALOPRAM 20MG 2/DAY [Suspect]
     Indication: ANXIETY
     Dosage: 2 DAILY PO
     Route: 048
     Dates: start: 20070117, end: 20070315
  2. CITALOPRAM 20MG 2/DAY [Suspect]
     Indication: DEPRESSION
     Dosage: 2 DAILY PO
     Route: 048
     Dates: start: 20070117, end: 20070315
  3. ENBREL [Concomitant]

REACTIONS (3)
  - DECREASED APPETITE [None]
  - FATIGUE [None]
  - NAUSEA [None]
